FAERS Safety Report 17432064 (Version 1)
Quarter: 2020Q1

REPORT INFORMATION
  Report Type: Spontaneous
  Country: JP (occurrence: JP)
  Receive Date: 20200218
  Receipt Date: 20200218
  Transmission Date: 20200409
  Serious: Yes (Other)
  Sender: FDA-Public Use
  Company Number: JP-009507513-2002JPN006507

PATIENT
  Age: 77 Year
  Sex: Male
  Weight: 49 kg

DRUGS (9)
  1. GLACTIV [Suspect]
     Active Substance: SITAGLIPTIN
     Indication: TYPE 2 DIABETES MELLITUS
     Dosage: 25 MILLIGRAM, EVERYDAY
     Route: 048
     Dates: start: 2008
  2. OPDIVO [Suspect]
     Active Substance: NIVOLUMAB
     Dosage: 144 MILLIGRAM, IV DRIP
     Route: 041
     Dates: start: 20180727, end: 20181019
  3. NEXIUM [Concomitant]
     Active Substance: ESOMEPRAZOLE MAGNESIUM
     Dosage: UNK
     Dates: start: 2008
  4. NU-LOTAN TABLETS 100MG [Concomitant]
     Active Substance: LOSARTAN
     Dosage: UNK
     Dates: start: 2008
  5. CALBLOCK [Concomitant]
     Active Substance: AZELNIDIPINE
     Dosage: UNK
     Dates: start: 2008
  6. SODIUM FERROUS CITRATE [Concomitant]
     Active Substance: SODIUM FERROUS CITRATE
     Dosage: UNK
     Dates: start: 2008
  7. OPDIVO [Suspect]
     Active Substance: NIVOLUMAB
     Indication: NON-SMALL CELL LUNG CANCER RECURRENT
     Dosage: 144 MILLIGRAM, IV DRIP
     Route: 041
     Dates: start: 20171117, end: 20180525
  8. OPDIVO [Suspect]
     Active Substance: NIVOLUMAB
     Dosage: 240 MILLIGRAM, IV DRIP
     Route: 041
     Dates: start: 20181102, end: 20191025
  9. RAMIAN [Concomitant]
     Active Substance: SIMVASTATIN
     Dosage: UNK
     Dates: start: 2008

REACTIONS (4)
  - Hepatic function abnormal [Recovered/Resolved]
  - Renal impairment [Not Recovered/Not Resolved]
  - Tubulointerstitial nephritis [Not Recovered/Not Resolved]
  - Hypothyroidism [Recovered/Resolved]

NARRATIVE: CASE EVENT DATE: 20180525
